FAERS Safety Report 18025799 (Version 1)
Quarter: 2020Q3

REPORT INFORMATION
  Report Type: Spontaneous
  Country: CN (occurrence: CN)
  Receive Date: 20200715
  Receipt Date: 20200715
  Transmission Date: 20201103
  Serious: Yes (Hospitalization, Other)
  Sender: FDA-Public Use
  Company Number: CN-JNJFOC-20200709808

PATIENT
  Age: 70 Year
  Sex: Male
  Weight: 65 kg

DRUGS (1)
  1. XARELTO [Suspect]
     Active Substance: RIVAROXABAN
     Indication: ATRIAL FIBRILLATION
     Dosage: 20 MG, QD
     Route: 048
     Dates: start: 20200518, end: 20200528

REACTIONS (6)
  - Basal ganglia haemorrhage [Unknown]
  - Vomiting [Unknown]
  - Loss of consciousness [Unknown]
  - Eye disorder [Unknown]
  - Muscle twitching [Unknown]
  - Epilepsy [Unknown]

NARRATIVE: CASE EVENT DATE: 20200528
